APPROVED DRUG PRODUCT: MEFENAMIC ACID
Active Ingredient: MEFENAMIC ACID
Strength: 250MG
Dosage Form/Route: CAPSULE;ORAL
Application: A091608 | Product #001 | TE Code: AB
Applicant: AJENAT PHARMACEUTICALS LLC
Approved: Jun 2, 2014 | RLD: No | RS: No | Type: RX